FAERS Safety Report 9657020 (Version 1)
Quarter: 2013Q4

REPORT INFORMATION
  Report Type: Spontaneous
  Country: US (occurrence: None)
  Receive Date: 20131029
  Receipt Date: 20131029
  Transmission Date: 20140711
  Serious: Yes (Hospitalization)
  Sender: FDA-Public Use
  Company Number: None

PATIENT
  Age: 87 Year
  Sex: Male
  Weight: 76 kg

DRUGS (16)
  1. PRADAXA [Suspect]
     Indication: ATRIAL FIBRILLATION
     Route: 048
     Dates: start: 20130730, end: 20131027
  2. ZOMETA [Concomitant]
  3. DOCUSATE SODIUM [Concomitant]
  4. FLOMAX [Concomitant]
  5. MEGACE [Concomitant]
  6. OCUVITE [Concomitant]
  7. PERIACTIN [Concomitant]
  8. MIDODRINE [Concomitant]
  9. VITAMIN D3 [Concomitant]
  10. LEXAPRO [Concomitant]
  11. OMEPRAZOLE [Concomitant]
  12. METOPROLOL [Concomitant]
  13. FLECANIDE [Concomitant]
  14. POTASSIUM CHLORIDE [Concomitant]
  15. XARELTO [Concomitant]
  16. MIRTAZAPINE [Concomitant]

REACTIONS (1)
  - Haematemesis [None]
